FAERS Safety Report 6084450-6 (Version None)
Quarter: 2009Q1

REPORT INFORMATION
  Report Type: 
  Country: None (occurrence: None)
  Receive Date: 20090219
  Receipt Date: 20090216
  Transmission Date: 20090719
  Serious: Yes (Other)
  Sender: FDA-Public Use
  Company Number: PHHY2009JP02471

PATIENT
  Age: 8 Year
  Sex: Male

DRUGS (7)
  1. SANDIMMUNE [Suspect]
     Indication: ALLOGENIC BONE MARROW TRANSPLANTATION THERAPY
     Dosage: UNK
  2. METHOTREXATE [Suspect]
     Indication: BONE MARROW TRANSPLANT
     Dosage: UNK
  3. METHOTREXATE [Suspect]
     Indication: PROPHYLAXIS AGAINST GRAFT VERSUS HOST DISEASE
  4. MELPHALAN [Concomitant]
     Indication: BONE MARROW TRANSPLANT
  5. ETOPOSIDE [Concomitant]
     Indication: BONE MARROW TRANSPLANT
  6. CARBOPLATIN [Concomitant]
     Indication: BONE MARROW TRANSPLANT
  7. IRRADIATION [Concomitant]
     Indication: BONE MARROW TRANSPLANT

REACTIONS (4)
  - CHRONIC GRAFT VERSUS HOST DISEASE [None]
  - HEPATIC FUNCTION ABNORMAL [None]
  - NODULAR REGENERATIVE HYPERPLASIA [None]
  - RASH [None]
